FAERS Safety Report 8259578-2 (Version None)
Quarter: 2012Q2

REPORT INFORMATION
  Report Type: 
  Country: None (occurrence: None)
  Receive Date: 20120404
  Receipt Date: 20120330
  Transmission Date: 20120825
  Serious: Yes (Hospitalization)
  Sender: FDA-Public Use
  Company Number: PHHO2009BE11193

PATIENT
  Sex: Male
  Weight: 74 kg

DRUGS (3)
  1. AFINITOR [Suspect]
     Indication: METASTATIC RENAL CELL CARCINOMA
     Dosage: 10 MG, DAILY
     Route: 048
     Dates: start: 20090811, end: 20090924
  2. AFINITOR [Suspect]
     Dosage: 5 MG, DAILY
     Route: 048
     Dates: start: 20091007
  3. AVASTIN [Suspect]
     Indication: METASTATIC RENAL CELL CARCINOMA
     Dosage: 10 MG/KG
     Route: 042
     Dates: start: 20090811, end: 20090924

REACTIONS (10)
  - EASTERN COOPERATIVE ONCOLOGY GROUP PERFORMANCE STATUS WORSENED [None]
  - VOMITING [None]
  - DECREASED APPETITE [None]
  - NAUSEA [None]
  - ABDOMINAL PAIN [None]
  - MUSCULAR WEAKNESS [None]
  - PERFORMANCE STATUS DECREASED [None]
  - ASTHENIA [None]
  - MUSCULOSKELETAL PAIN [None]
  - STOMATITIS [None]
